FAERS Safety Report 4810805-0 (Version None)
Quarter: 2005Q4

REPORT INFORMATION
  Report Type: 
  Country: None (occurrence: None)
  Receive Date: 20051024
  Receipt Date: 20051010
  Transmission Date: 20060501
  Serious: Yes (Other)
  Sender: FDA-Public Use
  Company Number: 2005139876

PATIENT
  Sex: Male
  Weight: 96.1626 kg

DRUGS (11)
  1. SUDAFED 12 HOUR [Suspect]
     Dosage: ONCE, ORAL
     Route: 048
     Dates: start: 20030101, end: 20030101
  2. CLOPIDOGREL BISULFATE [Concomitant]
  3. FINASTERIDE [Concomitant]
  4. RAMIPRIL [Concomitant]
  5. CARVEDILOL [Concomitant]
  6. WARFARIN SODIUM [Concomitant]
  7. NICOTINIC ACID [Concomitant]
  8. EPLERENONE (EPLERENONE) [Concomitant]
  9. ATORVASTATIN CALCIUM [Concomitant]
  10. ASPIRIN [Concomitant]
  11. VITAMINS (VITAMINS) [Concomitant]

REACTIONS (4)
  - BLADDER DISORDER [None]
  - CATHETER RELATED INFECTION [None]
  - CYSTITIS [None]
  - PAIN [None]
